FAERS Safety Report 25952785 (Version 1)
Quarter: 2025Q4

REPORT INFORMATION
  Report Type: Spontaneous
  Country: US (occurrence: US)
  Receive Date: 20251023
  Receipt Date: 20251023
  Transmission Date: 20260117
  Serious: No
  Sender: NANJING KING-FRIEND BIOCHEMICAL PHARMACEUTICAL
  Company Number: US-NKFPHARMA-2025MPSPO00339

PATIENT
  Age: 85 Year
  Sex: Male
  Weight: 73 kg

DRUGS (2)
  1. LIRAGLUTIDE [Suspect]
     Active Substance: LIRAGLUTIDE
     Indication: Type 2 diabetes mellitus
     Route: 065
     Dates: start: 202508, end: 202509
  2. JARDIANCE [Concomitant]
     Active Substance: EMPAGLIFLOZIN
     Route: 065

REACTIONS (4)
  - Fatigue [Recovered/Resolved]
  - Frequent bowel movements [Recovered/Resolved]
  - Diarrhoea [Recovered/Resolved]
  - Product substitution issue [Unknown]

NARRATIVE: CASE EVENT DATE: 20250101
